FAERS Safety Report 17812860 (Version 1)
Quarter: 2020Q2

REPORT INFORMATION
  Report Type: Spontaneous
  Country: US (occurrence: US)
  Receive Date: 20200521
  Receipt Date: 20200521
  Transmission Date: 20200714
  Serious: Yes (Life-Threatening, Hospitalization)
  Sender: FDA-Public Use
  Company Number: None

PATIENT
  Age: 25 Year
  Sex: Female
  Weight: 76.6 kg

DRUGS (1)
  1. TYLENOL ARTHRITIS PAIN [Suspect]
     Active Substance: ACETAMINOPHEN
     Dosage: ?          OTHER FREQUENCY:ONCE;?
     Route: 048
     Dates: start: 20180202, end: 20180203

REACTIONS (5)
  - Medication error [None]
  - Intentional overdose [None]
  - Drug peak level [None]
  - Circumstance or information capable of leading to medication error [None]
  - Drug monitoring procedure incorrectly performed [None]

NARRATIVE: CASE EVENT DATE: 20180202
